FAERS Safety Report 21693766 (Version 2)
Quarter: 2022Q4

REPORT INFORMATION
  Report Type: Spontaneous
  Country: JP (occurrence: JP)
  Receive Date: 20221207
  Receipt Date: 20221219
  Transmission Date: 20230113
  Serious: Yes (Death)
  Sender: FDA-Public Use
  Company Number: JP-GSK-JP2022JPN181984

PATIENT

DRUGS (1)
  1. SOTROVIMAB [Suspect]
     Active Substance: SOTROVIMAB
     Dosage: 500 MG/100 ML/30 MIN
     Dates: start: 20221126, end: 20221126

REACTIONS (3)
  - Coronavirus infection [Fatal]
  - Disease progression [Fatal]
  - Lung disorder [Unknown]

NARRATIVE: CASE EVENT DATE: 20221127
